FAERS Safety Report 23015307 (Version 1)
Quarter: 2023Q4

REPORT INFORMATION
  Report Type: Spontaneous
  Country: IT (occurrence: IT)
  Receive Date: 20231002
  Receipt Date: 20231002
  Transmission Date: 20240109
  Serious: Yes (Other)
  Sender: FDA-Public Use
  Company Number: IT-AMGEN-ITASP2023171527

PATIENT
  Age: 64 Year
  Sex: Female

DRUGS (8)
  1. FILGRASTIM [Suspect]
     Active Substance: FILGRASTIM
     Indication: Prophylaxis
     Dosage: UNK UNK, CYCLICAL, 2 CYCLES
     Route: 065
     Dates: start: 20121016, end: 20130120
  2. FLUDARABINE [Concomitant]
     Active Substance: FLUDARABINE PHOSPHATE
     Dosage: UNK UNK, CYCLICAL, 2 CYCLE
     Dates: start: 20121016, end: 20130120
  3. CYTARABINE [Concomitant]
     Active Substance: CYTARABINE
     Dosage: UNK UNK, CYCLICAL, 2 CYCLES
     Dates: start: 20121016, end: 20130120
  4. IDARUBICIN [Concomitant]
     Active Substance: IDARUBICIN
     Dosage: UNK UNK, CYCLICAL,  2 CYCLES
     Dates: start: 20121016, end: 20130120
  5. CYTARABINE [Concomitant]
     Active Substance: CYTARABINE
     Dosage: UNK UNK, CYCLICAL, 1 CYCLE
     Dates: start: 20130220
  6. AZACITIDINE [Concomitant]
     Active Substance: AZACITIDINE
     Dosage: UNK UNK, CYCLICAL, 30 CYCLE
     Dates: start: 20140406, end: 20161107
  7. CYCLOSPORINE [Concomitant]
     Active Substance: CYCLOSPORINE
  8. TENOFOVIR [Concomitant]
     Active Substance: TENOFOVIR

REACTIONS (2)
  - Graft versus host disease in liver [Unknown]
  - Hepatitis B reactivation [Recovered/Resolved]

NARRATIVE: CASE EVENT DATE: 20131101
